FAERS Safety Report 5196297-3 (Version None)
Quarter: 2006Q4

REPORT INFORMATION
  Report Type: 
  Country: None (occurrence: None)
  Receive Date: 20061222
  Receipt Date: 20061211
  Transmission Date: 20070319
  Serious: Yes (Other)
  Sender: FDA-Public Use
  Company Number: 2006152184

PATIENT
  Sex: Male

DRUGS (1)
  1. SULPERAZON (SULBACTAM, CEFOPERAZONE) [Suspect]
     Indication: ASTHMA
     Dosage: 1 GRAM (1 GRAM, 1 IN 1 D)
     Dates: start: 20061201, end: 20061201

REACTIONS (2)
  - ASTHMA [None]
  - CONDITION AGGRAVATED [None]
